FAERS Safety Report 24058774 (Version 1)
Quarter: 2024Q3

REPORT INFORMATION
  Report Type: Spontaneous
  Country: CN (occurrence: CN)
  Receive Date: 20240708
  Receipt Date: 20240708
  Transmission Date: 20241016
  Serious: Yes (Hospitalization)
  Sender: TERSERA THERAPEUTICS
  Company Number: CN-AstraZeneca-2024A152640

PATIENT

DRUGS (2)
  1. GOSERELIN [Suspect]
     Active Substance: GOSERELIN
     Indication: Endocrine disorder
     Dosage: 10.8 MILLIGRAM, QD
     Route: 058
     Dates: start: 20240507, end: 20240507
  2. ZOLADEX [Suspect]
     Active Substance: GOSERELIN ACETATE
     Indication: Endocrine disorder
     Dosage: UNK
     Route: 065

REACTIONS (4)
  - Contusion [Recovering/Resolving]
  - Abdominal pain [Recovering/Resolving]
  - Swelling [Recovering/Resolving]
  - Pyrexia [Recovering/Resolving]

NARRATIVE: CASE EVENT DATE: 20240507
